FAERS Safety Report 7077245-8 (Version None)
Quarter: 2010Q4

REPORT INFORMATION
  Report Type: 
  Country: None (occurrence: None)
  Receive Date: 20101101
  Receipt Date: 20101018
  Transmission Date: 20110411
  Serious: Yes (Death, Other)
  Sender: FDA-Public Use
  Company Number: US-ACTELION-A-US2010-36445

PATIENT
  Sex: Female

DRUGS (15)
  1. BOSENTAN TABLET UNKNOWN US MG [Suspect]
     Indication: PULMONARY ARTERIAL HYPERTENSION
     Dosage: UNK MG, UNK
     Route: 048
     Dates: start: 20100330
  2. ZOCOR [Concomitant]
  3. METOPROLOL [Concomitant]
  4. COZAAR [Concomitant]
  5. PLAVIX [Concomitant]
  6. ASPIRIN [Concomitant]
  7. ADVAIR DISKUS 100/50 [Concomitant]
  8. VICODIN [Concomitant]
  9. IRON SULFATETHIAMIN COMPOUND TAB [Concomitant]
  10. FUROSEMIDE [Concomitant]
  11. PANTOPRAZOLE [Concomitant]
  12. HYDRALAZINE [Concomitant]
  13. POTASSIUM CHLORIDE [Concomitant]
  14. DIGOXIN [Concomitant]
  15. FOLIC ACID [Concomitant]

REACTIONS (3)
  - DEATH [None]
  - DEMENTIA [None]
  - DIVERTICULITIS [None]
